FAERS Safety Report 15946777 (Version 1)
Quarter: 2019Q1

REPORT INFORMATION
  Report Type: Spontaneous
  Country: JP (occurrence: JP)
  Receive Date: 20190212
  Receipt Date: 20190212
  Transmission Date: 20190417
  Serious: Yes (Other)
  Sender: FDA-Public Use
  Company Number: JP-PANACEA BIOTEC LTD-2019-JP-000004

PATIENT
  Age: 44 Year
  Sex: Male

DRUGS (1)
  1. TACROLIMUS. [Suspect]
     Active Substance: TACROLIMUS
     Indication: PROPHYLAXIS AGAINST TRANSPLANT REJECTION
     Dosage: PER DAY
     Route: 065

REACTIONS (2)
  - Product use in unapproved indication [Unknown]
  - Glomerulonephritis membranous [Unknown]
